FAERS Safety Report 5322940-1 (Version None)
Quarter: 2007Q2

REPORT INFORMATION
  Report Type: 
  Country: None (occurrence: None)
  Receive Date: 20070511
  Receipt Date: 20070508
  Transmission Date: 20071010
  Serious: Yes (Hospitalization)
  Sender: FDA-Public Use
  Company Number: JP-MERCK-0705USA01824

PATIENT
  Age: 66 Year
  Sex: Female

DRUGS (5)
  1. FOSAMAX [Suspect]
     Indication: OSTEOPOROSIS
     Route: 048
     Dates: start: 20060310, end: 20070416
  2. DIOVAN [Suspect]
     Indication: HYPERTENSION
     Route: 048
     Dates: start: 20040604, end: 20070416
  3. NORVASC [Suspect]
     Route: 048
     Dates: start: 20040604, end: 20070416
  4. DEPAS [Suspect]
     Route: 048
     Dates: start: 20070122, end: 20070416
  5. [THERAPY UNSPECIFIED] [Suspect]
     Indication: TOOTH DISORDER
     Route: 065
     Dates: start: 20070101

REACTIONS (1)
  - COLITIS [None]
